FAERS Safety Report 25673328 (Version 2)
Quarter: 2025Q4

REPORT INFORMATION
  Report Type: Spontaneous
  Country: US (occurrence: US)
  Receive Date: 20250813
  Receipt Date: 20251107
  Transmission Date: 20260119
  Serious: Yes (Other)
  Sender: RANBAXY
  Company Number: US-MIMS-SUN-2025-USA-54358

PATIENT
  Sex: Male

DRUGS (2)
  1. ODOMZO [Suspect]
     Active Substance: SONIDEGIB
     Indication: Basal cell carcinoma
     Dosage: 200 MILLIGRAM, QD
     Route: 048
     Dates: start: 2025
  2. ODOMZO [Suspect]
     Active Substance: SONIDEGIB
     Dosage: 200 MILLIGRAM, QD
     Route: 048
     Dates: start: 20250211

REACTIONS (9)
  - Weight decreased [Unknown]
  - Neoplasm progression [Unknown]
  - Neoplasm recurrence [Unknown]
  - Asthenia [Unknown]
  - Feeding disorder [Unknown]
  - Nausea [Unknown]
  - Taste disorder [Unknown]
  - Vomiting [Unknown]
  - Therapy cessation [Unknown]

NARRATIVE: CASE EVENT DATE: 20250101
